FAERS Safety Report 24695261 (Version 1)
Quarter: 2024Q4

REPORT INFORMATION
  Report Type: Spontaneous
  Country: US (occurrence: None)
  Receive Date: 20241204
  Receipt Date: 20241204
  Transmission Date: 20250115
  Serious: Yes (Life-Threatening, Other)
  Sender: Public
  Company Number: None

PATIENT
  Age: 32 Year
  Sex: Female
  Weight: 78.75 kg

DRUGS (7)
  1. BUPROPION HYDROCHLORIDE XL [Suspect]
     Active Substance: BUPROPION HYDROCHLORIDE
     Indication: Depression
     Dosage: OTHER QUANTITY : 90 TABLET(S);?FREQUENCY : DAILY;?
     Route: 048
     Dates: start: 20241021, end: 20241110
  2. FINGOLIMOD [Concomitant]
     Active Substance: FINGOLIMOD
  3. SERTRALINE [Concomitant]
     Active Substance: SERTRALINE HYDROCHLORIDE
  4. MIRENA [Concomitant]
     Active Substance: LEVONORGESTREL
  5. BACLOFEN [Concomitant]
     Active Substance: BACLOFEN
  6. VITAMIN D [Concomitant]
     Active Substance: VITAMIN D NOS
  7. Liquid children^s allergy medicine [Concomitant]

REACTIONS (4)
  - Skin hypopigmentation [None]
  - Body temperature decreased [None]
  - Drug hypersensitivity [None]
  - Stevens-Johnson syndrome [None]

NARRATIVE: CASE EVENT DATE: 20241110
